FAERS Safety Report 4911031-7 (Version None)
Quarter: 2006Q1

REPORT INFORMATION
  Report Type: 
  Country: None (occurrence: None)
  Receive Date: 20060209
  Receipt Date: 20060126
  Transmission Date: 20060701
  Serious: Yes (Hospitalization)
  Sender: FDA-Public Use
  Company Number: 2005149657

PATIENT
  Age: 56 Year
  Sex: Female
  Weight: 51.6 kg

DRUGS (6)
  1. IRINOTECAN HCL [Suspect]
     Indication: OVARIAN CANCER
     Dosage: 80 MG (INTERMITTENT), INTRAVENOUS
     Route: 042
     Dates: start: 20050225, end: 20050419
  2. DOCETAXEL (DOCETAXEL) [Suspect]
     Indication: OVARIAN CANCER
     Dosage: INTRAVENOUS; SEE IMAGE
     Route: 042
     Dates: start: 20040608, end: 20040907
  3. DOCETAXEL (DOCETAXEL) [Suspect]
     Indication: OVARIAN CANCER
     Dosage: INTRAVENOUS; SEE IMAGE
     Route: 042
     Dates: start: 20050304, end: 20050419
  4. NEU-UP (NARTOGRASTIM) [Suspect]
     Indication: AGRANULOCYTOSIS
     Dosage: SUBCUTANEOUS
     Route: 058
     Dates: start: 20050311, end: 20050315
  5. WARFARIN SODIUM [Concomitant]
  6. PANSPORIN (CEFOTIAM HYDDROCHLORIDE) [Concomitant]

REACTIONS (19)
  - ALPHA HAEMOLYTIC STREPTOCOCCAL INFECTION [None]
  - BRONCHOALVEOLAR LAVAGE ABNORMAL [None]
  - CHILLS [None]
  - COMPUTERISED TOMOGRAM ABNORMAL [None]
  - DYSPNOEA [None]
  - EOSINOPHIL COUNT INCREASED [None]
  - HYPERSENSITIVITY [None]
  - INTERSTITIAL LUNG DISEASE [None]
  - MYCOPLASMA SEROLOGY POSITIVE [None]
  - NEISSERIA INFECTION [None]
  - NEUTROPENIA [None]
  - OVARIAN CANCER [None]
  - OXYGEN SATURATION DECREASED [None]
  - PLEURAL EFFUSION [None]
  - PLEURAL FIBROSIS [None]
  - PNEUMONIA MYCOPLASMAL [None]
  - PYREXIA [None]
  - RECURRENT CANCER [None]
  - STAPHYLOCOCCAL INFECTION [None]
